FAERS Safety Report 4656978-4 (Version None)
Quarter: 2005Q2

REPORT INFORMATION
  Report Type: 
  Country: None (occurrence: None)
  Receive Date: 20050506
  Receipt Date: 20050429
  Transmission Date: 20051028
  Serious: Yes (Hospitalization, Other)
  Sender: FDA-Public Use
  Company Number: GBWYE606621APR05

PATIENT
  Age: 49 Year
  Sex: Male

DRUGS (23)
  1. RAPAMUNE [Suspect]
     Indication: PROPHYLAXIS AGAINST TRANSPLANT REJECTION
     Dosage: SEE IMAGE
     Route: 048
     Dates: start: 20040628, end: 20040628
  2. RAPAMUNE [Suspect]
     Indication: PROPHYLAXIS AGAINST TRANSPLANT REJECTION
     Dosage: SEE IMAGE
     Route: 048
     Dates: start: 20040629, end: 20040912
  3. RAPAMUNE [Suspect]
     Indication: PROPHYLAXIS AGAINST TRANSPLANT REJECTION
     Dosage: SEE IMAGE
     Route: 048
     Dates: start: 20040913
  4. WARFARIN SODIUM [Concomitant]
  5. HEPARIN [Concomitant]
  6. LISINOPRIL [Concomitant]
  7. FRUSEMIDE (FRUSEMIDE) [Concomitant]
  8. BISOPROLOL FUMARATE [Concomitant]
  9. ALFACALCIDOL (ALFACALCIDOL) [Concomitant]
  10. ASPIRIN [Concomitant]
  11. LESCOL [Concomitant]
  12. ALENDRONATE SODIUM [Concomitant]
  13. EFUDIX (FLUOROURACIL) [Concomitant]
  14. IMIQUIMOD (IMIQUIMOD) [Concomitant]
  15. COLCHICINE (COLCHICINE) [Concomitant]
  16. DAKTACORT (HYDROCORTISONE/MICONAZOLE NITRATE) [Concomitant]
  17. PROBENECID [Concomitant]
  18. SIMVASTATIN [Concomitant]
  19. ATENOLOL [Concomitant]
  20. FLECAINIDE ACETATE [Concomitant]
  21. DIGOXIN [Concomitant]
  22. PREDNISONE [Concomitant]
  23. AZATHIOPRINE [Concomitant]

REACTIONS (1)
  - RENAL MASS [None]
